FAERS Safety Report 9166427 (Version 1)
Quarter: 2013Q1

REPORT INFORMATION
  Report Type: Spontaneous
  Country: US (occurrence: US)
  Receive Date: 20130315
  Receipt Date: 20130315
  Transmission Date: 20140127
  Serious: Yes (Hospitalization)
  Sender: FDA-Public Use
  Company Number: US-BAYER-2013-030828

PATIENT
  Age: 38 Year
  Sex: Female
  Weight: 101.13 kg

DRUGS (17)
  1. OCELLA [Suspect]
     Dosage: UNK
     Dates: start: 201007, end: 201009
  2. YASMIN [Suspect]
     Indication: POLYCYSTIC OVARIES
     Dosage: UNK
     Dates: start: 200701, end: 200807
  3. AMOXICILLIN W/CLAVULANIC ACID [Concomitant]
     Dosage: 875 MG, UNK
     Route: 048
  4. FLUTICASONE [Concomitant]
     Route: 045
  5. NITROFURANTOIN [Concomitant]
     Dosage: 100 MG, UNK
     Route: 048
  6. HYDROCODONE [HOMATROPINE HYDROBROMIDE,HYDROCODONE BITARTRATE] [Concomitant]
     Dosage: 5/500 MG
     Route: 048
  7. ZOFRAN [Concomitant]
     Indication: NAUSEA
     Dosage: 4 MG, UNK
     Route: 042
  8. ACETAMINOPHEN [Concomitant]
     Indication: HEADACHE
     Dosage: 650 MG, UNK
     Route: 048
  9. METOCLOPRAMIDE [Concomitant]
     Dosage: 10 MG, UNK
     Route: 042
  10. TRAMADOL [Concomitant]
     Indication: HEADACHE
     Dosage: 50 MG, UNK
     Route: 048
  11. PROCHLORPERAZINE [Concomitant]
     Dosage: 10 MG, UNK
     Route: 048
  12. XANAX [Concomitant]
     Dosage: 0.5 MG, UNK
     Route: 048
  13. HUMALOG MIX [INSULIN LISPRO,INSULIN LISPRO PROTAMINE SUSPENSION] [Concomitant]
     Indication: DIABETES MELLITUS
  14. PRAVACHOL [Concomitant]
  15. CALCIMAX [CALCIUM CHLORIDE DIHYDRATE,CALCIUM LAEVULINATE,VITAMINS [Concomitant]
  16. PEPCID [CALCIUM CARBONATE,FAMOTIDINE,MAGNESIUM HYDROXIDE] [Concomitant]
  17. LEXAPRO [Concomitant]
     Indication: DEPRESSION

REACTIONS (8)
  - Cerebral artery occlusion [Recovering/Resolving]
  - Depression [None]
  - Anxiety [None]
  - Transient ischaemic attack [None]
  - Hypoaesthesia [None]
  - Headache [None]
  - Convulsion [Recovering/Resolving]
  - Asthenia [Recovering/Resolving]
